FAERS Safety Report 14879245 (Version 1)
Quarter: 2018Q2

REPORT INFORMATION
  Report Type: Spontaneous
  Country: US (occurrence: US)
  Receive Date: 20180511
  Receipt Date: 20180511
  Transmission Date: 20180711
  Serious: Yes (Death, Hospitalization)
  Sender: FDA-Public Use
  Company Number: US-CIPLA LTD.-2018US17421

PATIENT

DRUGS (5)
  1. NITROGLYCERINE [Suspect]
     Active Substance: NITROGLYCERIN
     Dosage: UNK
  2. AMLODIPINE [Suspect]
     Active Substance: AMLODIPINE BESYLATE
     Indication: ARTERIOSPASM CORONARY
     Dosage: UNK
     Route: 065
  3. GEMCITABINE [Suspect]
     Active Substance: GEMCITABINE\GEMCITABINE HYDROCHLORIDE
     Indication: CHOLANGIOCARCINOMA
     Dosage: UNK
     Route: 065
  4. CISPLATIN. [Suspect]
     Active Substance: CISPLATIN
     Indication: CHOLANGIOCARCINOMA
     Dosage: UNK
     Route: 065
  5. NITROGLYCERINE [Suspect]
     Active Substance: NITROGLYCERIN
     Indication: ARTERIOSPASM CORONARY
     Dosage: UNK
     Route: 060

REACTIONS (4)
  - Arteriospasm coronary [Unknown]
  - Meningitis cryptococcal [Unknown]
  - Ventricular fibrillation [Fatal]
  - Disease recurrence [Unknown]
